FAERS Safety Report 7477970-0 (Version None)
Quarter: 2011Q2

REPORT INFORMATION
  Report Type: 
  Country: None (occurrence: None)
  Receive Date: 20110511
  Receipt Date: 20110511
  Transmission Date: 20111010
  Serious: Yes (Hospitalization)
  Sender: FDA-Public Use
  Company Number: None

PATIENT
  Age: 78 Year
  Sex: Female
  Weight: 59.4212 kg

DRUGS (1)
  1. PRADAXA [Suspect]
     Dosage: 150MG TWICE DAILY PO
     Route: 048

REACTIONS (4)
  - HAEMOGLOBIN ABNORMAL [None]
  - MOUTH HAEMORRHAGE [None]
  - MELAENA [None]
  - HAEMATOCRIT ABNORMAL [None]
